FAERS Safety Report 11659295 (Version 1)
Quarter: 2015Q4

REPORT INFORMATION
  Report Type: Spontaneous
  Country: US (occurrence: None)
  Receive Date: 20151023
  Receipt Date: 20151023
  Transmission Date: 20160304
  Serious: No
  Sender: FDA-Public Use
  Company Number: None

PATIENT
  Age: 49 Year
  Sex: Female
  Weight: 68.04 kg

DRUGS (18)
  1. VIVEL-DOT [Concomitant]
  2. VIAMIN D [Concomitant]
  3. VALGANCICLOVIR [Suspect]
     Active Substance: VALGANCICLOVIR
     Indication: CYTOMEGALOVIRUS INFECTION
     Dosage: 1 PILL
     Route: 048
     Dates: start: 20151007, end: 20151022
  4. OMEPRAZOLE. [Concomitant]
     Active Substance: OMEPRAZOLE
  5. VITAMIN B1 (THIAMIN) [Concomitant]
  6. VALGANCICLOVIR [Concomitant]
     Active Substance: VALGANCICLOVIR
  7. TRAMADOL. [Concomitant]
     Active Substance: TRAMADOL
  8. REGLAN [Concomitant]
     Active Substance: METOCLOPRAMIDE HYDROCHLORIDE
  9. HAIR, SKIN AND NAILS [Concomitant]
  10. FLUDROCORTISONE ACETATE. [Concomitant]
     Active Substance: FLUDROCORTISONE ACETATE
  11. BENADRYL [Concomitant]
     Active Substance: DIPHENHYDRAMINE HYDROCHLORIDE
  12. LYRICA [Concomitant]
     Active Substance: PREGABALIN
  13. A-HYDROCORT [Concomitant]
     Active Substance: HYDROCORTISONE SODIUM SUCCINATE
  14. OXYBUTYNIN CHLORIDE. [Concomitant]
     Active Substance: OXYBUTYNIN CHLORIDE
  15. TOPIRAMATE. [Concomitant]
     Active Substance: TOPIRAMATE
  16. PILOCARPINE. [Concomitant]
     Active Substance: PILOCARPINE
  17. LEVOTHYROINE SODIUM [Concomitant]
  18. CYCLOBENZAPRINEHCL [Concomitant]

REACTIONS (5)
  - Disease recurrence [None]
  - Suspected counterfeit product [None]
  - General symptom [None]
  - Product substitution issue [None]
  - Product odour abnormal [None]

NARRATIVE: CASE EVENT DATE: 20150930
